FAERS Safety Report 6542786-6 (Version None)
Quarter: 2010Q1

REPORT INFORMATION
  Report Type: 
  Country: None (occurrence: None)
  Receive Date: 20100114
  Receipt Date: 20100104
  Transmission Date: 20100710
  Serious: Yes (Hospitalization)
  Sender: FDA-Public Use
  Company Number: 2009SP003440

PATIENT
  Age: 83 Year
  Sex: Female

DRUGS (15)
  1. BROVANA [Suspect]
     Indication: CHRONIC OBSTRUCTIVE PULMONARY DISEASE
     Dosage: 15 UG/2ML; BID; INHALATION
     Route: 055
     Dates: start: 20080101, end: 20081201
  2. BROVANA [Suspect]
     Indication: CHRONIC OBSTRUCTIVE PULMONARY DISEASE
     Dosage: 15 UG/2ML; BID; INHALATION
     Route: 055
     Dates: start: 20090101, end: 20090501
  3. BROVANA [Suspect]
     Indication: CHRONIC OBSTRUCTIVE PULMONARY DISEASE
     Dosage: 15 UG/2ML; BID; INHALATION
     Route: 055
     Dates: start: 20090101, end: 20090701
  4. BROVANA [Suspect]
     Indication: CHRONIC OBSTRUCTIVE PULMONARY DISEASE
     Dosage: 15 UG/2ML; BID; INHALATION
     Route: 055
     Dates: start: 20090801, end: 20090801
  5. BROVANA [Suspect]
     Indication: CHRONIC OBSTRUCTIVE PULMONARY DISEASE
     Dosage: 15 UG/2ML; BID; INHALATION
     Route: 055
     Dates: start: 20090901
  6. ZOCOR [Concomitant]
  7. CELEXA [Concomitant]
  8. PREDNISONE [Concomitant]
  9. FOLIC ACID [Concomitant]
  10. FISH OIL [Concomitant]
  11. MULTIVITAMIN /00831701/ [Concomitant]
  12. CALCIUM [Concomitant]
  13. CALCITRIOL [Concomitant]
  14. ALBUTEROL [Concomitant]
  15. OXYGEN [Concomitant]

REACTIONS (10)
  - ANKLE FRACTURE [None]
  - CATARACT [None]
  - DRUG INEFFECTIVE [None]
  - DYSPNOEA [None]
  - FALL [None]
  - GASTROINTESTINAL INFECTION [None]
  - HYPOTENSION [None]
  - MACULOPATHY [None]
  - PAIN [None]
  - SPINAL COMPRESSION FRACTURE [None]
